FAERS Safety Report 10189491 (Version 2)
Quarter: 2014Q2

REPORT INFORMATION
  Report Type: Spontaneous
  Country: JP (occurrence: JP)
  Receive Date: 20140522
  Receipt Date: 20140522
  Transmission Date: 20141212
  Serious: No
  Sender: FDA-Public Use
  Company Number: CHPA2014JP005382

PATIENT
  Sex: Female

DRUGS (1)
  1. LAMISIL [Suspect]
     Dosage: UNK
     Route: 047

REACTIONS (2)
  - Eye irritation [Recovered/Resolved]
  - Drug administered at inappropriate site [Recovered/Resolved]
